FAERS Safety Report 7048719-0 (Version None)
Quarter: 2010Q4

REPORT INFORMATION
  Report Type: 
  Country: None (occurrence: None)
  Receive Date: 20101018
  Receipt Date: 20101008
  Transmission Date: 20110411
  Serious: Yes (Hospitalization)
  Sender: FDA-Public Use
  Company Number: US-BIOGENIDEC-2010BI034883

PATIENT
  Age: 54 Year
  Sex: Female

DRUGS (2)
  1. AVONEX [Suspect]
     Indication: MULTIPLE SCLEROSIS
     Route: 030
     Dates: start: 20030101
  2. AVONEX [Suspect]
     Route: 030

REACTIONS (6)
  - AMNESIA [None]
  - DISTURBANCE IN ATTENTION [None]
  - FATIGUE [None]
  - GAIT DISTURBANCE [None]
  - HEMIPARESIS [None]
  - INFLAMMATION [None]
